FAERS Safety Report 17450991 (Version 1)
Quarter: 2020Q1

REPORT INFORMATION
  Report Type: Spontaneous
  Country: ZA (occurrence: ZA)
  Receive Date: 20200224
  Receipt Date: 20200224
  Transmission Date: 20200409
  Serious: Yes (Other)
  Sender: FDA-Public Use
  Company Number: ZA-MYLANLABS-2020M1019838

PATIENT
  Sex: Female

DRUGS (2)
  1. PANTOCID                           /01263204/ [Suspect]
     Active Substance: PANTOPRAZOLE SODIUM
     Indication: PRODUCT USED FOR UNKNOWN INDICATION
     Dosage: UNK
  2. PANTOPRAZOLE [Suspect]
     Active Substance: PANTOPRAZOLE
     Indication: PRODUCT USED FOR UNKNOWN INDICATION
     Dosage: UNK
     Route: 048

REACTIONS (6)
  - Reynold^s syndrome [Unknown]
  - Liver disorder [Unknown]
  - Abdominal discomfort [Unknown]
  - Scleroderma [Unknown]
  - Conjunctivitis [Unknown]
  - Nausea [Unknown]
